FAERS Safety Report 5848886-8 (Version None)
Quarter: 2008Q3

REPORT INFORMATION
  Report Type: 
  Country: None (occurrence: None)
  Receive Date: 20080818
  Receipt Date: 20080808
  Transmission Date: 20090109
  Serious: Yes (Other)
  Sender: FDA-Public Use
  Company Number: US-JNJCH-2008020913

PATIENT
  Age: 66 Year
  Sex: Male

DRUGS (1)
  1. NATURAL CITRUS LISTERINE [Suspect]
     Indication: DENTAL DISORDER PROPHYLAXIS
     Dosage: TEXT:20 ML ONE TIME
     Route: 048

REACTIONS (1)
  - CONVULSION [None]
